FAERS Safety Report 9282953 (Version 1)
Quarter: 2013Q2

REPORT INFORMATION
  Report Type: Spontaneous
  Country: IT (occurrence: IT)
  Receive Date: 20130510
  Receipt Date: 20130510
  Transmission Date: 20140414
  Serious: Yes (Life-Threatening)
  Sender: FDA-Public Use
  Company Number: IT-BAYER-2013-035156

PATIENT
  Age: 69 Year
  Sex: Female
  Weight: 52 kg

DRUGS (3)
  1. ULTRAVIST [Suspect]
     Indication: CHOLANGIOGRAM
     Dosage: 100 ML, ONCE
     Route: 042
     Dates: start: 20130313, end: 20130313
  2. ANTINEOPLASTIC AGENTS [Concomitant]
     Indication: CHOLANGIOCARCINOMA
  3. PLASIL [Concomitant]
     Dosage: UNK
     Route: 042

REACTIONS (3)
  - Loss of consciousness [Unknown]
  - Acute myocardial infarction [Recovering/Resolving]
  - Cardiac arrest [Recovering/Resolving]
